FAERS Safety Report 9076856 (Version 1)
Quarter: 2013Q1

REPORT INFORMATION
  Report Type: Report from Study
  Country: US (occurrence: US)
  Receive Date: 20130129
  Receipt Date: 20130129
  Transmission Date: 20140127
  Serious: Yes (Other)
  Sender: FDA-Public Use
  Company Number: US-ABBOTT-12P-163-0944493-00

PATIENT
  Age: 62 Year
  Sex: Female

DRUGS (2)
  1. HUMIRA 40 MG/0.8 ML PEN [Suspect]
     Indication: PSORIATIC ARTHROPATHY
     Dates: start: 201106
  2. HUMIRA 40 MG/0.8 ML PEN [Suspect]
     Dosage: INJECT UNDER THE SKIN EVERY OTHER WEEK

REACTIONS (3)
  - Knee arthroplasty [Unknown]
  - Arthralgia [Unknown]
  - Drug ineffective [Unknown]
